FAERS Safety Report 9527650 (Version 1)
Quarter: 2013Q1

REPORT INFORMATION
  Report Type: Spontaneous
  Country: US (occurrence: None)
  Receive Date: 20130314
  Receipt Date: 20130314
  Transmission Date: 20140127
  Serious: No
  Sender: FDA-Public Use
  Company Number: HRA-CDB20130011

PATIENT
  Sex: Female

DRUGS (1)
  1. ELLA [Suspect]
     Indication: CONTRACEPTION
     Dosage: 30 MG (30 MG,1 IN 1 D)
     Dates: start: 20120626, end: 20120626

REACTIONS (2)
  - Pruritus [None]
  - Diarrhoea [None]
